FAERS Safety Report 12425481 (Version 1)
Quarter: 2016Q2

REPORT INFORMATION
  Report Type: Spontaneous
  Country: US (occurrence: US)
  Receive Date: 20160601
  Receipt Date: 20160601
  Transmission Date: 20160815
  Serious: Yes (Other)
  Sender: FDA-Public Use
  Company Number: US-SA-2016SA103038

PATIENT
  Sex: Female

DRUGS (2)
  1. SOLOSTAR [Concomitant]
     Active Substance: DEVICE
     Indication: TYPE 2 DIABETES MELLITUS
  2. LANTUS SOLOSTAR [Suspect]
     Active Substance: INSULIN GLARGINE
     Indication: TYPE 2 DIABETES MELLITUS
     Dosage: DOSE:17 UNIT(S)
     Route: 065

REACTIONS (10)
  - Intervertebral disc disorder [Unknown]
  - Neuropathy peripheral [Unknown]
  - Product use issue [Unknown]
  - Intervertebral disc protrusion [Unknown]
  - Cast application [Unknown]
  - Unevaluable event [Unknown]
  - Drug dose omission [Unknown]
  - Brain neoplasm [Unknown]
  - Arthropathy [Unknown]
  - Skin ulcer [Unknown]
